FAERS Safety Report 8219240-9 (Version None)
Quarter: 2012Q1

REPORT INFORMATION
  Report Type: 
  Country: None (occurrence: None)
  Receive Date: 20120319
  Receipt Date: 20120306
  Transmission Date: 20120608
  Serious: Yes (Disabling, Other)
  Sender: FDA-Public Use
  Company Number: US-ELI_LILLY_AND_COMPANY-US201203002646

PATIENT
  Sex: Female

DRUGS (3)
  1. EFFEXOR XR [Concomitant]
     Dosage: 600 MG, UNK
  2. ZYPREXA [Suspect]
     Dosage: 40 MG, UNK
     Route: 065
  3. REMERON [Concomitant]
     Dosage: 30 MG, UNK

REACTIONS (4)
  - GASTRIC BYPASS [None]
  - OVERDOSE [None]
  - MALABSORPTION [None]
  - DEPRESSION [None]
